FAERS Safety Report 20538571 (Version 1)
Quarter: 2022Q1

REPORT INFORMATION
  Report Type: Spontaneous
  Country: IN (occurrence: IN)
  Receive Date: 20220302
  Receipt Date: 20220302
  Transmission Date: 20220424
  Serious: Yes (Hospitalization, Other)
  Sender: FDA-Public Use
  Company Number: IN-PHARMALEX-2021001145

PATIENT
  Age: 21 Year
  Sex: Male

DRUGS (9)
  1. ACETAMINOPHEN\TRAMADOL [Interacting]
     Active Substance: ACETAMINOPHEN\TRAMADOL
     Indication: Upper respiratory tract infection
     Dosage: 1 DOSAGE FORM, 3/DAY
     Route: 065
  2. ESCITALOPRAM [Interacting]
     Active Substance: ESCITALOPRAM OXALATE
     Indication: Bipolar disorder
     Dosage: 20 MILLIGRAM, 1/DAY
     Route: 065
  3. DEXTROMETHORPHAN [Interacting]
     Active Substance: DEXTROMETHORPHAN
     Indication: Upper respiratory tract infection
     Dosage: UNK
     Route: 048
  4. RISPERIDONE [Interacting]
     Active Substance: RISPERIDONE
     Indication: Bipolar disorder
     Dosage: 0.5 MILLIGRAM, 1/DAY
     Route: 065
  5. RISPERIDONE [Interacting]
     Active Substance: RISPERIDONE
     Dosage: 1 MILLIGRAM, 1/DAY
     Route: 065
  6. ONDANSETRON [Suspect]
     Active Substance: ONDANSETRON
     Indication: Nausea
     Dosage: UNK
     Route: 065
  7. ONDANSETRON [Suspect]
     Active Substance: ONDANSETRON
     Indication: Abdominal discomfort
     Route: 065
  8. AZITHROMYCIN [Concomitant]
     Active Substance: AZITHROMYCIN
     Indication: Upper respiratory tract infection
     Dosage: 500 MILLIGRAM, 1/DAY
     Route: 065
  9. HALOPERIDOL [Concomitant]
     Active Substance: HALOPERIDOL
     Dosage: UNK
     Route: 065

REACTIONS (12)
  - Gastrointestinal sounds abnormal [Unknown]
  - Incoherent [Unknown]
  - Leukocytosis [Unknown]
  - Abnormal behaviour [Unknown]
  - Blood creatine phosphokinase increased [Unknown]
  - Serotonin syndrome [Recovering/Resolving]
  - Drug interaction [Recovered/Resolved]
  - Headache [Unknown]
  - Sleep disorder [Unknown]
  - Tachycardia [Unknown]
  - Hypertension [Unknown]
  - Somnolence [Unknown]
